FAERS Safety Report 9536054 (Version 1)
Quarter: 2013Q3

REPORT INFORMATION
  Report Type: Spontaneous
  Country: US (occurrence: US)
  Receive Date: 20130919
  Receipt Date: 20130919
  Transmission Date: 20140515
  Serious: No
  Sender: FDA-Public Use
  Company Number: US-PFIZER INC-2013266825

PATIENT
  Age: 52 Year
  Sex: Female
  Weight: 68.03 kg

DRUGS (3)
  1. ADVIL [Suspect]
     Indication: HEADACHE
     Dosage: 200 MG, AS NEEDED
     Route: 048
  2. ADVIL [Suspect]
     Indication: BACK PAIN
     Dosage: UNK, AS NEEDED
     Route: 048
  3. SYNTHROID [Concomitant]
     Indication: THYROID DISORDER
     Dosage: 50 UG, DAILY

REACTIONS (3)
  - Poor quality drug administered [Unknown]
  - Blood cholesterol increased [Unknown]
  - Product physical issue [Unknown]
